FAERS Safety Report 4452934-X (Version None)
Quarter: 2004Q3

REPORT INFORMATION
  Report Type: 
  Country: None (occurrence: None)
  Receive Date: 20040916
  Receipt Date: 20040831
  Transmission Date: 20050211
  Serious: Yes (Hospitalization, Other)
  Sender: FDA-Public Use
  Company Number: 179963

PATIENT
  Age: 52 Year
  Sex: Female
  Weight: 97.5234 kg

DRUGS (4)
  1. AVONEX [Suspect]
     Indication: MULTIPLE SCLEROSIS
     Dates: start: 19970101
  2. EFFEXOR [Concomitant]
  3. WELLBUTRIN [Concomitant]
  4. PROVIGIL [Concomitant]

REACTIONS (13)
  - BREAST CANCER FEMALE [None]
  - CARDIOMYOPATHY [None]
  - CONDITION AGGRAVATED [None]
  - FAILURE OF IMPLANT [None]
  - HOT FLUSH [None]
  - HYPERTENSION [None]
  - MEMORY IMPAIRMENT [None]
  - MULTIPLE SCLEROSIS [None]
  - MUSCLE SPASMS [None]
  - MYOCARDIAL INFARCTION [None]
  - NASOPHARYNGITIS [None]
  - PNEUMONIA [None]
  - URINARY INCONTINENCE [None]
